FAERS Safety Report 4596471-0 (Version None)
Quarter: 2005Q1

REPORT INFORMATION
  Report Type: 
  Country: None (occurrence: None)
  Receive Date: 20050302
  Receipt Date: 20050223
  Transmission Date: 20050727
  Serious: Yes (Other)
  Sender: FDA-Public Use
  Company Number: US-JNJFOC-20050106207

PATIENT
  Age: 34 Year
  Sex: Male

DRUGS (7)
  1. REMICADE [Suspect]
     Indication: PSORIASIS
     Route: 042
  2. REMICADE [Suspect]
     Route: 042
  3. ZOLOFT [Concomitant]
     Indication: DEPRESSION
  4. LOTREL [Concomitant]
  5. LOTREL [Concomitant]
     Indication: HYPERTENSION
  6. ROCALTROL [Concomitant]
  7. PROTOPIC [Concomitant]
     Indication: PSORIASIS

REACTIONS (2)
  - CONVULSION [None]
  - LOSS OF CONSCIOUSNESS [None]
